FAERS Safety Report 6100299-X (Version None)
Quarter: 2009Q1

REPORT INFORMATION
  Report Type: 
  Country: None (occurrence: None)
  Receive Date: 20090303
  Receipt Date: 20090219
  Transmission Date: 20090719
  Serious: Yes (Hospitalization)
  Sender: FDA-Public Use
  Company Number: CA-PFIZER INC-2007076210

PATIENT

DRUGS (6)
  1. SUNITINIB MALATE [Suspect]
     Indication: BREAST CANCER METASTATIC
     Dosage: 37.5 MG, 1X/DAY
     Route: 048
     Dates: start: 20070628, end: 20070822
  2. EXEMESTANE [Suspect]
     Indication: BREAST CANCER METASTATIC
     Dosage: 25 MG, 1X/DAY
     Route: 048
     Dates: start: 20070628
  3. NOVO-METOPROL [Concomitant]
     Dosage: 100 MG
     Route: 048
  4. INDAPAMIDE [Concomitant]
     Dosage: 1.25 MG
     Route: 048
  5. ALLOPURINOL [Concomitant]
     Dosage: 100 MG
  6. CALTRATE [Concomitant]
     Dosage: 600 MG

REACTIONS (1)
  - PANCREATITIS ACUTE [None]
